FAERS Safety Report 8581663-6 (Version None)
Quarter: 2012Q3

REPORT INFORMATION
  Report Type: 
  Country: None (occurrence: None)
  Receive Date: 20120809
  Receipt Date: 20120803
  Transmission Date: 20120928
  Serious: Yes (Disabling, Other)
  Sender: FDA-Public Use
  Company Number: US-BAYER-2012-078684

PATIENT
  Age: 71 Year
  Sex: Female

DRUGS (1)
  1. BETASERON [Suspect]
     Indication: SECONDARY PROGRESSIVE MULTIPLE SCLEROSIS
     Dosage: 2 MIU, QOD
     Route: 058
     Dates: start: 20120720, end: 20120727

REACTIONS (2)
  - SENSATION OF HEAVINESS [None]
  - ABASIA [None]
